FAERS Safety Report 9368709 (Version 1)
Quarter: 2013Q2

REPORT INFORMATION
  Report Type: Spontaneous
  Country: NL (occurrence: NL)
  Receive Date: 20130626
  Receipt Date: 20130626
  Transmission Date: 20140414
  Serious: No
  Sender: FDA-Public Use
  Company Number: NL-ASTRAZENECA-2013SE47902

PATIENT
  Sex: Male

DRUGS (2)
  1. BRILIQUE [Suspect]
     Route: 048
  2. BRILIQUE [Suspect]
     Route: 048

REACTIONS (1)
  - Dyspnoea [Unknown]
